FAERS Safety Report 9471055 (Version 1)
Quarter: 2013Q3

REPORT INFORMATION
  Report Type: Spontaneous
  Country: CA (occurrence: None)
  Receive Date: 20130816
  Receipt Date: 20130816
  Transmission Date: 20140515
  Serious: Yes (Hospitalization)
  Sender: FDA-Public Use
  Company Number: 2013P1017375

PATIENT
  Age: 55 Year
  Sex: Female

DRUGS (5)
  1. CEFTAZIDIME [Suspect]
     Indication: MENINGITIS BACTERIAL
  2. VANCOMYCIN [Suspect]
     Indication: MENINGITIS BACTERIAL
  3. CEFTRIAXONE [Suspect]
     Indication: MENINGITIS BACTERIAL
  4. CIPROFLOXACIN [Concomitant]
  5. MEROPENEM [Concomitant]

REACTIONS (2)
  - Drug reaction with eosinophilia and systemic symptoms [None]
  - Histiocytosis haematophagic [None]
